FAERS Safety Report 23732467 (Version 1)
Quarter: 2024Q2

REPORT INFORMATION
  Report Type: Spontaneous
  Country: US (occurrence: None)
  Receive Date: 20240411
  Receipt Date: 20240411
  Transmission Date: 20240716
  Serious: No
  Sender: FDA-Public Use
  Company Number: None

PATIENT
  Age: 57 Year
  Sex: Female

DRUGS (1)
  1. PAZOPANIB [Suspect]
     Active Substance: PAZOPANIB
     Indication: Malignant connective tissue neoplasm
     Dosage: FREQUENCY : DAILY;?

REACTIONS (2)
  - Liver function test increased [None]
  - Therapy interrupted [None]

NARRATIVE: CASE EVENT DATE: 20240404
